FAERS Safety Report 26068203 (Version 1)
Quarter: 2025Q4

REPORT INFORMATION
  Report Type: Spontaneous
  Country: US (occurrence: US)
  Receive Date: 20251120
  Receipt Date: 20251120
  Transmission Date: 20260118
  Serious: No
  Sender: ROCHE
  Company Number: US-ROCHE-10000436179

PATIENT

DRUGS (1)
  1. OCREVUS ZUNOVO [Suspect]
     Active Substance: HYALURONIDASE-OCSQ\OCRELIZUMAB
     Indication: Relapsing multiple sclerosis
     Route: 042

REACTIONS (6)
  - Musculoskeletal stiffness [Unknown]
  - Injection site swelling [Unknown]
  - Injection site pain [Unknown]
  - Irritability [Unknown]
  - Fatigue [Unknown]
  - Discomfort [Unknown]
